FAERS Safety Report 5924066-2 (Version None)
Quarter: 2008Q4

REPORT INFORMATION
  Report Type: 
  Country: None (occurrence: None)
  Receive Date: 20081015
  Receipt Date: 20080714
  Transmission Date: 20090506
  Serious: Yes (Death)
  Sender: FDA-Public Use
  Company Number: 2008BI027074

PATIENT

DRUGS (6)
  1. ZEVALIN [Suspect]
     Indication: NON-HODGKIN'S LYMPHOMA
     Dosage: 1X; IV
     Route: 042
     Dates: start: 20050120, end: 20050120
  2. RITUXIIMAB [Concomitant]
  3. CYCLOPHOSPHAMIDE [Concomitant]
  4. PREDNISONE TAB [Concomitant]
  5. VINCRISTINE [Concomitant]
  6. DAUNORUBICIN HCL [Concomitant]

REACTIONS (4)
  - DISEASE RECURRENCE [None]
  - JC VIRUS INFECTION [None]
  - NON-HODGKIN'S LYMPHOMA [None]
  - PROGRESSIVE MULTIFOCAL LEUKOENCEPHALOPATHY [None]
